FAERS Safety Report 4556995-9 (Version None)
Quarter: 2005Q1

REPORT INFORMATION
  Report Type: 
  Country: None (occurrence: None)
  Receive Date: 20050118
  Receipt Date: 20050105
  Transmission Date: 20050727
  Serious: Yes (Other)
  Sender: FDA-Public Use
  Company Number: 2005005595

PATIENT
  Age: 72 Year
  Sex: Male

DRUGS (6)
  1. CELEBREX [Suspect]
     Indication: OSTEOARTHRITIS
     Dosage: 200 MG (200 MG, 1 IN 1 D), ORAL
     Route: 048
  2. ATENOLOL [Concomitant]
  3. RAMIPRIL [Concomitant]
  4. PRAVASTATIN [Concomitant]
  5. ASPIRIN [Concomitant]
  6. LORMETAZEPAM (LORMETAZEPAM) [Concomitant]

REACTIONS (2)
  - CEREBROVASCULAR ACCIDENT [None]
  - HYPERTENSION [None]
